FAERS Safety Report 12247012 (Version 2)
Quarter: 2016Q2

REPORT INFORMATION
  Report Type: Spontaneous
  Country: IT (occurrence: IT)
  Receive Date: 20160407
  Receipt Date: 20160503
  Transmission Date: 20160815
  Serious: Yes (Death)
  Sender: FDA-Public Use
  Company Number: IT-ABBVIE-16P-083-1599885-00

PATIENT
  Age: 73 Year
  Sex: Female

DRUGS (8)
  1. TACHIPIRINA [Concomitant]
     Active Substance: ACETAMINOPHEN
     Indication: PAIN
     Route: 048
     Dates: start: 20160119, end: 20160125
  2. SOLDESAM [Concomitant]
     Active Substance: DEXAMETHASONE
     Indication: PRODUCT USED FOR UNKNOWN INDICATION
     Route: 030
  3. KAYEXALATE [Concomitant]
     Active Substance: SODIUM POLYSTYRENE SULFONATE
     Indication: BLOOD POTASSIUM INCREASED
     Route: 048
  4. DILATREND [Concomitant]
     Active Substance: CARVEDILOL
     Indication: HYPERTENSION
     Dosage: 6.25 MG/DAY
     Route: 048
  5. LUVION [Concomitant]
     Active Substance: CANRENONE
     Indication: HYPERTENSION
     Route: 048
  6. REBETOL [Suspect]
     Active Substance: RIBAVIRIN
     Indication: CHRONIC HEPATITIS C
     Dosage: DAILY
     Route: 048
     Dates: start: 20160118, end: 20160122
  7. VIEKIRAX [Suspect]
     Active Substance: OMBITASVIR\PARITAPREVIR\RITONAVIR
     Indication: CHRONIC HEPATITIS C
     Dosage: DAILY
     Route: 048
     Dates: start: 20160118, end: 20160125
  8. EXVIERA [Suspect]
     Active Substance: DASABUVIR
     Indication: CHRONIC HEPATITIS C
     Dosage: DAILY
     Route: 048
     Dates: start: 20160118, end: 20160125

REACTIONS (3)
  - Renal failure [Fatal]
  - Cardiac failure [Fatal]
  - Pain [Fatal]

NARRATIVE: CASE EVENT DATE: 20160119
